FAERS Safety Report 18405273 (Version 1)
Quarter: 2020Q4

REPORT INFORMATION
  Report Type: Spontaneous
  Country: CA (occurrence: CA)
  Receive Date: 20201020
  Receipt Date: 20201020
  Transmission Date: 20210114
  Serious: Yes (Life-Threatening, Hospitalization)
  Sender: FDA-Public Use
  Company Number: CA-ASTRAZENECA-2020SF36239

PATIENT
  Age: 53 Year
  Sex: Female
  Weight: 50 kg

DRUGS (4)
  1. ATORVASTATIN [Suspect]
     Active Substance: ATORVASTATIN
     Dosage: 300 MG
     Route: 048
  2. NALTREXONE [Suspect]
     Active Substance: NALTREXONE
     Dosage: 750 MG
     Route: 048
  3. QUETIAPINE. [Suspect]
     Active Substance: QUETIAPINE
     Dosage: 3 G
     Route: 048
  4. VALPROIC ACID. [Suspect]
     Active Substance: VALPROIC ACID
     Dosage: 15 G
     Route: 048

REACTIONS (5)
  - Intentional overdose [Recovered/Resolved]
  - Depressed level of consciousness [Recovered/Resolved]
  - Suicide attempt [Recovered/Resolved]
  - Toxicity to various agents [Recovered/Resolved]
  - Somnolence [Recovered/Resolved]
